FAERS Safety Report 13810212 (Version 3)
Quarter: 2017Q3

REPORT INFORMATION
  Report Type: Spontaneous
  Country: US (occurrence: US)
  Receive Date: 20170728
  Receipt Date: 20170809
  Transmission Date: 20171127
  Serious: Yes (Other)
  Sender: FDA-Public Use
  Company Number: US-GLAXOSMITHKLINE-US2017GSK117476

PATIENT
  Age: 31 Year
  Sex: Female

DRUGS (3)
  1. OPSUMIT [Concomitant]
     Active Substance: MACITENTAN
  2. FLOLAN [Suspect]
     Active Substance: EPOPROSTENOL SODIUM
     Indication: PULMONARY ARTERIAL HYPERTENSION
     Dosage: UNK
     Dates: start: 20160726
  3. FLOLAN [Suspect]
     Active Substance: EPOPROSTENOL SODIUM
     Indication: PULMONARY ARTERIAL HYPERTENSION
     Dosage: 30 DF, CO
     Dates: start: 20111111

REACTIONS (8)
  - Device issue [Unknown]
  - Peripheral swelling [Unknown]
  - Skin warm [Unknown]
  - Central venous catheterisation [Unknown]
  - Drug dose omission [Unknown]
  - Application site erythema [Unknown]
  - Application site vesicles [Unknown]
  - Erythema [Unknown]

NARRATIVE: CASE EVENT DATE: 20170726
